FAERS Safety Report 7718694-1 (Version None)
Quarter: 2011Q3

REPORT INFORMATION
  Report Type: 
  Country: None (occurrence: None)
  Receive Date: 20110830
  Receipt Date: 20110818
  Transmission Date: 20111222
  Serious: No
  Sender: FDA-Public Use
  Company Number: CA-ELI_LILLY_AND_COMPANY-CA201108005749

PATIENT
  Sex: Female

DRUGS (13)
  1. VALPROIC ACID [Concomitant]
  2. ZYPREXA [Suspect]
     Dosage: 5 MG, QD
  3. QUETIAPINE [Concomitant]
  4. CELEXA [Concomitant]
  5. PAXIL [Concomitant]
  6. ZYPREXA [Suspect]
     Dosage: 15 MG, QD
  7. ZOPICLONE [Concomitant]
  8. RISPERIDONE [Concomitant]
  9. DIAZEPAM [Concomitant]
  10. OXAZEPAM [Concomitant]
  11. ZYPREXA [Suspect]
     Indication: BIPOLAR DISORDER
     Dosage: 10 MG, QD
  12. ARIPIPRAZOLE [Concomitant]
  13. ZYPREXA [Suspect]
     Dosage: 20 MG, QD

REACTIONS (5)
  - CYSTITIS [None]
  - EPILEPSY [None]
  - EPISTAXIS [None]
  - VULVOVAGINAL MYCOTIC INFECTION [None]
  - TYPE 2 DIABETES MELLITUS [None]
